FAERS Safety Report 6750551-X (Version None)
Quarter: 2010Q2

REPORT INFORMATION
  Report Type: 
  Country: None (occurrence: None)
  Receive Date: 20100528
  Receipt Date: 20100528
  Transmission Date: 20101027
  Serious: Yes (Hospitalization)
  Sender: FDA-Public Use
  Company Number: None

PATIENT
  Sex: Female
  Weight: 60.4 kg

DRUGS (4)
  1. CARBOPLATIN [Suspect]
     Dosage: 658 MG
  2. TAXOL [Suspect]
     Dosage: 282 MG
  3. LISINOPRIL [Concomitant]
  4. LOVASTATIN [Concomitant]

REACTIONS (5)
  - BLOOD POTASSIUM DECREASED [None]
  - BLOOD PRESSURE DECREASED [None]
  - FACIAL PAIN [None]
  - HAEMOGLOBIN DECREASED [None]
  - SYNCOPE [None]
